FAERS Safety Report 7110418-4 (Version None)
Quarter: 2010Q4

REPORT INFORMATION
  Report Type: 
  Country: None (occurrence: None)
  Receive Date: 20101118
  Receipt Date: 20101108
  Transmission Date: 20110411
  Serious: Yes (Other)
  Sender: FDA-Public Use
  Company Number: FR-JNJFOC-20101102681

PATIENT
  Age: 14 Year
  Sex: Female

DRUGS (3)
  1. REMICADE [Suspect]
     Indication: CROHN'S DISEASE
     Route: 042
  2. REMICADE [Suspect]
     Dosage: 10TH INFUSION
     Route: 042
  3. REMICADE [Suspect]
     Dosage: RECEIVED 8 INFUSIONS
     Route: 042

REACTIONS (9)
  - ANAPHYLACTOID REACTION [None]
  - BRADYCARDIA [None]
  - CHILLS [None]
  - CONVULSION [None]
  - CYANOSIS [None]
  - DRUG INEFFECTIVE [None]
  - HYPERVENTILATION [None]
  - INFUSION RELATED REACTION [None]
  - VOMITING [None]
